FAERS Safety Report 17661363 (Version 2)
Quarter: 2021Q1

REPORT INFORMATION
  Report Type: Spontaneous
  Country: US (occurrence: US)
  Receive Date: 20200413
  Receipt Date: 20210326
  Transmission Date: 20210419
  Serious: Yes (Other)
  Sender: FDA-Public Use
  Company Number: US-GLAXOSMITHKLINE-US2020AMR062755

PATIENT
  Sex: Female

DRUGS (2)
  1. ZEJULA [Suspect]
     Active Substance: NIRAPARIB
     Dosage: 300 MG, QD
  2. ZEJULA [Suspect]
     Active Substance: NIRAPARIB
     Indication: OVARIAN CANCER
     Dosage: 300 MG, BID
     Dates: start: 20200220

REACTIONS (8)
  - Overdose [Unknown]
  - Platelet count decreased [Unknown]
  - Gastric infection [Unknown]
  - Upper respiratory tract infection [Unknown]
  - Sinusitis [Unknown]
  - Blood glucose increased [Not Recovered/Not Resolved]
  - Feeling abnormal [Unknown]
  - Red blood cell count decreased [Unknown]
